FAERS Safety Report 9479336 (Version 1)
Quarter: 2013Q3

REPORT INFORMATION
  Report Type: Spontaneous
  Country: FR (occurrence: FR)
  Receive Date: 20130827
  Receipt Date: 20130827
  Transmission Date: 20140515
  Serious: Yes (Hospitalization)
  Sender: FDA-Public Use
  Company Number: PHHY2013FR091926

PATIENT
  Age: 71 Year
  Sex: Female

DRUGS (9)
  1. AMOXICILLINE-ACIDE CLAVULANIQUE [Suspect]
     Indication: PNEUMONIA ASPIRATION
     Dosage: 3 G, QD
     Route: 042
     Dates: start: 20130613, end: 20130617
  2. CONTRAMAL [Concomitant]
     Dosage: 2 DF, UNK
     Dates: start: 20130613, end: 20130613
  3. SPASFON [Concomitant]
  4. BEVITINE [Concomitant]
  5. PARACETAMOL [Concomitant]
  6. GLUCOSE [Concomitant]
  7. BECILAN [Concomitant]
  8. FOLIC ACID [Concomitant]
  9. DIFFU K [Concomitant]

REACTIONS (2)
  - Blood lactate dehydrogenase increased [Recovered/Resolved]
  - Hepatocellular injury [Recovered/Resolved]
